FAERS Safety Report 7959554-0 (Version None)
Quarter: 2011Q4

REPORT INFORMATION
  Report Type: 
  Country: None (occurrence: None)
  Receive Date: 20111206
  Receipt Date: 20111124
  Transmission Date: 20120403
  Serious: Yes (Hospitalization)
  Sender: FDA-Public Use
  Company Number: JP-SANOFI-AVENTIS-2010SA040794

PATIENT
  Age: 44 Year
  Sex: Female
  Weight: 71 kg

DRUGS (61)
  1. LASIX [Suspect]
     Indication: OEDEMA
     Route: 048
     Dates: start: 20070526, end: 20080301
  2. RISPERDAL [Concomitant]
     Dosage: 0-0.5 ML A DOSE, 0-1 TIME A DAY
     Route: 048
     Dates: start: 20090508, end: 20090617
  3. RISPERDAL [Concomitant]
     Dosage: 2-3 TIMES A DAY
     Route: 048
     Dates: start: 20100416, end: 20100607
  4. RISPERDAL [Concomitant]
     Dosage: 2-3 TIMES A DAY
     Route: 048
     Dates: start: 20100416, end: 20100607
  5. CHLORPROMAZINE HCL [Suspect]
     Route: 048
     Dates: start: 20100306, end: 20100429
  6. TRAVELMIN [Concomitant]
     Route: 048
     Dates: start: 20090508, end: 20100609
  7. BIPERIDEN HYDROCHLORIDE TAB [Concomitant]
     Route: 048
     Dates: start: 20100312
  8. RISPERDAL [Concomitant]
     Dosage: 3-4 TIMES A DAY
     Route: 048
     Dates: start: 20090819, end: 20090923
  9. RISPERDAL [Concomitant]
     Dosage: 1-2 ML A DOSE
     Route: 048
     Dates: start: 20091009, end: 20091105
  10. CHLORPROMAZINE HCL [Suspect]
     Route: 048
     Dates: start: 20100306, end: 20100429
  11. VEGETAMIN A [Concomitant]
     Indication: INSOMNIA
     Dosage: 1-2 TABLETS A DOSE
     Route: 048
     Dates: start: 20100227, end: 20100311
  12. VEGETAMIN A [Concomitant]
     Dosage: 1-2 TABLETS A DOSE
     Route: 048
     Dates: start: 20100227, end: 20100311
  13. VEGETAMIN A [Concomitant]
     Dosage: 1-2 TABLETS A DOSE
     Route: 048
     Dates: start: 20100312, end: 20100609
  14. BIPERIDEN HYDROCHLORIDE TAB [Concomitant]
     Dosage: 2-4 TIMES A DAY
     Route: 048
     Dates: start: 20100206, end: 20100214
  15. BIPERIDEN HYDROCHLORIDE TAB [Concomitant]
     Dosage: 1-2 MG A DOSE
     Route: 048
     Dates: start: 20100215, end: 20100226
  16. ATARAX [Concomitant]
     Route: 048
     Dates: start: 20100218
  17. ALPRAZOLAM [Concomitant]
     Dosage: 0.4-0.8 MG A DOSE
     Route: 048
     Dates: start: 20090902, end: 20090923
  18. RISPERDAL [Concomitant]
     Dosage: 1-2 ML A DOSE
     Route: 048
     Dates: start: 20091009, end: 20091105
  19. HERBAL PREPARATION [Suspect]
     Route: 048
     Dates: end: 20100607
  20. VEGETAMIN A [Concomitant]
     Dosage: 1-2 TABLETS A DOSE
     Route: 048
     Dates: start: 20100312, end: 20100609
  21. ATARAX [Concomitant]
     Indication: PARKINSONISM
     Route: 048
     Dates: start: 20090508, end: 20100217
  22. RISPERDAL [Concomitant]
     Dosage: 2-3 TIMES A DAY
     Route: 048
     Dates: start: 20100416, end: 20100607
  23. RISPERDAL [Concomitant]
     Route: 048
     Dates: start: 20100608
  24. CHLORPROMAZINE HCL [Suspect]
     Indication: INSOMNIA
     Dosage: 50 MG X1, 25 MG X1, 50 MG X1
     Route: 048
     Dates: start: 20100430, end: 20100609
  25. CHLORPROMAZINE HCL [Suspect]
     Dosage: 50 MG X1, 25 MG X1, 50 MG X1
     Route: 048
     Dates: start: 20100430, end: 20100609
  26. SELBEX [Concomitant]
     Indication: GASTRITIS
     Route: 048
     Dates: start: 20090508
  27. SILECE [Concomitant]
     Route: 048
     Dates: start: 20090924
  28. RISPERDAL [Concomitant]
     Dosage: 1-2 TIMES A DAY
     Route: 048
     Dates: start: 20090520, end: 20090818
  29. RISPERDAL [Concomitant]
     Dosage: 1-2 TIMES A DAY
     Route: 048
     Dates: start: 20090520, end: 20090818
  30. RISPERDAL [Concomitant]
     Dosage: 1-2 ML A DOSE, 3-5 TIMES A DAY
     Route: 048
     Dates: start: 20090924, end: 20091008
  31. RISPERDAL [Concomitant]
     Dosage: 1-2 ML A DOSE, 3-5 TIMES A DAY
     Route: 048
     Dates: start: 20090924, end: 20091008
  32. RISPERDAL [Concomitant]
     Dosage: 1-2 ML A DOSE, 3-4 TIMES A DAY
     Route: 048
     Dates: start: 20100127, end: 20100415
  33. CHLORPROMAZINE HCL [Suspect]
     Route: 048
     Dates: start: 20100218, end: 20100305
  34. ALPRAZOLAM [Concomitant]
     Indication: ANXIETY
     Route: 048
     Dates: start: 20090508, end: 20090714
  35. ALPRAZOLAM [Concomitant]
     Route: 048
     Dates: start: 20090715, end: 20090901
  36. ALPRAZOLAM [Concomitant]
     Dosage: 0.4-0.8 MG A DOSE
     Route: 048
     Dates: start: 20090924
  37. RISPERDAL [Concomitant]
     Dosage: 3-4 TIMES A DAY
     Route: 048
     Dates: start: 20090819, end: 20090923
  38. RISPERDAL [Concomitant]
     Dosage: 1-2 ML A DOSE, 2-3 TIMES A DAY
     Route: 048
     Dates: start: 20091106, end: 20091203
  39. RISPERDAL [Concomitant]
     Dosage: 1-2 ML A DOSE, 2-3 TIMES A DAY
     Route: 048
     Dates: start: 20091106, end: 20091203
  40. RISPERDAL [Concomitant]
     Dosage: 2-3 TIMES A DAY
     Route: 048
     Dates: start: 20091204, end: 20100126
  41. RISPERDAL [Concomitant]
     Route: 048
     Dates: start: 20100608
  42. FERROUS SULFATE TAB [Concomitant]
     Indication: IRON DEFICIENCY ANAEMIA
     Route: 048
     Dates: start: 20090508
  43. LASIX [Suspect]
     Route: 048
     Dates: start: 20080405
  44. CHLORPROMAZINE HCL [Suspect]
     Route: 048
     Dates: start: 20100218, end: 20100305
  45. MOTILIUM [Concomitant]
     Indication: VOMITING
     Route: 048
     Dates: start: 20090508
  46. BIPERIDEN HYDROCHLORIDE TAB [Concomitant]
     Dosage: 1-2 MG A DOSE, 3-4 TIMES A DAY
     Route: 048
     Dates: start: 20100227, end: 20100311
  47. SILECE [Concomitant]
     Indication: INSOMNIA
     Route: 048
     Dates: start: 20090508, end: 20090923
  48. RISPERDAL [Concomitant]
     Dosage: 1-2 ML A DOSE, 3-5 TIMES A DAY
     Route: 048
     Dates: start: 20090924, end: 20091008
  49. RISPERDAL [Concomitant]
     Dosage: 1-2 ML A DOSE
     Route: 048
     Dates: start: 20091009, end: 20091105
  50. RISPERDAL [Concomitant]
     Dosage: 2-3 TIMES A DAY
     Route: 048
     Dates: start: 20091204, end: 20100126
  51. RISPERDAL [Concomitant]
     Dosage: 1-2 ML A DOSE, 3-4 TIMES A DAY
     Route: 048
     Dates: start: 20100127, end: 20100415
  52. RISPERDAL [Concomitant]
     Dosage: 1-2 ML A DOSE, 3-4 TIMES A DAY
     Route: 048
     Dates: start: 20100127, end: 20100415
  53. LASIX [Suspect]
     Route: 048
     Dates: start: 20090501, end: 20100501
  54. BIPERIDEN HYDROCHLORIDE TAB [Concomitant]
     Indication: PARKINSONISM
     Route: 048
     Dates: start: 20090508, end: 20100205
  55. RISPERDAL [Concomitant]
     Indication: DELUSION
     Dosage: 0-0.5 ML A DOSE, 0-1 TIME A DAY
     Route: 048
     Dates: start: 20090508, end: 20090617
  56. RISPERDAL [Concomitant]
     Indication: IMPULSIVE BEHAVIOUR
     Dosage: 0-0.5 ML A DOSE, 0-1 TIME A DAY
     Route: 048
     Dates: start: 20090508, end: 20090617
  57. RISPERDAL [Concomitant]
     Dosage: 1-2 TIMES A DAY
     Route: 048
     Dates: start: 20090520, end: 20090818
  58. RISPERDAL [Concomitant]
     Dosage: 3-4 TIMES A DAY
     Route: 048
     Dates: start: 20090819, end: 20090923
  59. RISPERDAL [Concomitant]
     Dosage: 1-2 ML A DOSE, 2-3 TIMES A DAY
     Route: 048
     Dates: start: 20091106, end: 20091203
  60. RISPERDAL [Concomitant]
     Dosage: 2-3 TIMES A DAY
     Route: 048
     Dates: start: 20091204, end: 20100126
  61. RISPERDAL [Concomitant]
     Route: 048
     Dates: start: 20100608

REACTIONS (2)
  - HYPOKALAEMIA [None]
  - TORSADE DE POINTES [None]
